FAERS Safety Report 7004295-X (Version None)
Quarter: 2010Q3

REPORT INFORMATION
  Report Type: 
  Country: None (occurrence: None)
  Receive Date: 20100921
  Receipt Date: 20100907
  Transmission Date: 20110219
  Serious: Yes (Hospitalization)
  Sender: FDA-Public Use
  Company Number: JP-BIOGENIDEC-2009BI025768

PATIENT
  Age: 31 Year
  Sex: Female

DRUGS (17)
  1. AVONEX [Suspect]
     Indication: RELAPSING-REMITTING MULTIPLE SCLEROSIS
     Route: 030
     Dates: start: 20090311
  2. PREDONINE [Concomitant]
     Indication: MULTIPLE SCLEROSIS RELAPSE
     Dates: start: 20081227, end: 20090316
  3. PREDONINE [Concomitant]
     Dates: start: 20090317, end: 20090320
  4. PREDONINE [Concomitant]
     Dates: start: 20090321, end: 20090323
  5. PREDONINE [Concomitant]
     Dates: start: 20090504, end: 20090508
  6. PREDONINE [Concomitant]
     Dates: start: 20090509
  7. PREDONINE [Concomitant]
     Dates: start: 20090522
  8. PREDONINE [Concomitant]
     Dates: start: 20090529
  9. PREDONINE [Concomitant]
     Dates: start: 20090714
  10. PREDNISOLONE [Concomitant]
     Dates: start: 20090918
  11. PREDNISOLONE [Concomitant]
     Dates: start: 20091030
  12. PREDNISOLONE [Concomitant]
     Dates: start: 20091211
  13. PREDNISOLONE [Concomitant]
     Dates: start: 20090417
  14. KOLANTYL [Concomitant]
     Dates: start: 20090503
  15. KOLANTYL [Concomitant]
     Dates: start: 20090529
  16. KOLANTYL [Concomitant]
     Dates: start: 20090717
  17. ACTONEL [Concomitant]
     Dates: start: 20090918

REACTIONS (4)
  - CONTRAST MEDIA ALLERGY [None]
  - MULTIPLE SCLEROSIS RELAPSE [None]
  - PYELONEPHRITIS [None]
  - WHITE BLOOD CELL COUNT INCREASED [None]
